FAERS Safety Report 15210048 (Version 1)
Quarter: 2018Q3

REPORT INFORMATION
  Report Type: Spontaneous
  Country: US (occurrence: IT)
  Receive Date: 20180727
  Receipt Date: 20180727
  Transmission Date: 20181010
  Serious: Yes (Hospitalization)
  Sender: FDA-Public Use
  Company Number: US-EGALET US INC-IT-2018EGA000503

PATIENT
  Age: 87 Year
  Sex: Female

DRUGS (3)
  1. KETOROLAC [Suspect]
     Active Substance: KETOROLAC\KETOROLAC TROMETHAMINE
     Indication: PROCEDURAL PAIN
     Dosage: UNK
  2. PARACETAMOL [Suspect]
     Active Substance: ACETAMINOPHEN
     Indication: PROCEDURAL PAIN
     Dosage: UNK
  3. ANAESTHETICS [Suspect]
     Active Substance: UNSPECIFIED INGREDIENT
     Indication: ABDOMINAL OPERATION
     Dosage: UNK

REACTIONS (1)
  - Metabolic acidosis [Unknown]
